FAERS Safety Report 6801084-3 (Version None)
Quarter: 2010Q2

REPORT INFORMATION
  Report Type: 
  Country: None (occurrence: None)
  Receive Date: 20100615
  Receipt Date: 20100610
  Transmission Date: 20101027
  Serious: Yes (Life-Threatening, Hospitalization)
  Sender: FDA-Public Use
  Company Number: DE201006000651

PATIENT
  Sex: Male

DRUGS (3)
  1. ETOPOSIDE [Suspect]
     Dates: start: 20090622, end: 20090918
  2. *CISPLATINCCISPLATIN)UNKNOWN [Suspect]
     Dates: start: 20090622, end: 20090918
  3. RADIATION (RADIATION) UNKNOWN [Suspect]
     Dates: start: 20090622, end: 20090804

REACTIONS (7)
  - CARDIOVASCULAR DISORDER [None]
  - HAEMOGLOBIN DECREASED [None]
  - MICROCOCCUS INFECTION [None]
  - NO THERAPEUTIC RESPONSE [None]
  - PERICARDIAL EFFUSION [None]
  - PERICARDIAL HAEMORRHAGE [None]
  - PLEURAL EFFUSION [None]
